FAERS Safety Report 7389427-6 (Version None)
Quarter: 2011Q2

REPORT INFORMATION
  Report Type: 
  Country: None (occurrence: None)
  Receive Date: 20110401
  Receipt Date: 20110323
  Transmission Date: 20111010
  Serious: Yes (Other)
  Sender: FDA-Public Use
  Company Number: AU-BRISTOL-MYERS SQUIBB COMPANY-15635162

PATIENT
  Sex: Female

DRUGS (3)
  1. CRESTOR [Concomitant]
  2. VITAMIN D [Concomitant]
     Dosage: VIT D CO ENZYME 10
  3. KARVEZIDE [Suspect]
     Indication: HYPERTENSION
     Dosage: STARTED 10 YEARS AGO,1 DF = 300/12.5 MG HALF TAB
     Dates: start: 20100101, end: 20110320

REACTIONS (5)
  - NAUSEA [None]
  - GASTROINTESTINAL PAIN [None]
  - GASTRIC ULCER [None]
  - FOOD INTOLERANCE [None]
  - LACTOSE INTOLERANCE [None]
